FAERS Safety Report 5715587-6 (Version None)
Quarter: 2008Q2

REPORT INFORMATION
  Report Type: 
  Country: None (occurrence: None)
  Receive Date: 20080423
  Receipt Date: 20080423
  Transmission Date: 20081010
  Serious: No
  Sender: FDA-Public Use
  Company Number: None

PATIENT
  Sex: Female
  Weight: 69.7 kg

DRUGS (1)
  1. ONDANSETRON [Suspect]
     Indication: PREGNANCY
     Dosage: 8MG PRN PO
     Route: 048
     Dates: start: 20080328, end: 20080410

REACTIONS (4)
  - DRUG INEFFECTIVE [None]
  - NAUSEA [None]
  - THERAPEUTIC RESPONSE UNEXPECTED WITH DRUG SUBSTITUTION [None]
  - VOMITING [None]
